FAERS Safety Report 7892046-6 (Version None)
Quarter: 2011Q4

REPORT INFORMATION
  Report Type: 
  Country: None (occurrence: None)
  Receive Date: 20111103
  Receipt Date: 20110812
  Transmission Date: 20120403
  Serious: No
  Sender: FDA-Public Use
  Company Number: US-AMGEN-USASP2011041372

PATIENT
  Age: 30 Year
  Sex: Male

DRUGS (3)
  1. PREDNISONE [Concomitant]
     Dosage: UNK
  2. ENBREL [Suspect]
     Indication: PSORIASIS
  3. ENBREL [Suspect]
     Indication: PSORIATIC ARTHROPATHY
     Dosage: 50 MG, 2 TIMES/WK
     Dates: start: 20110516

REACTIONS (7)
  - TOOTHACHE [None]
  - WEIGHT INCREASED [None]
  - TENDON PAIN [None]
  - PSORIATIC ARTHROPATHY [None]
  - FATIGUE [None]
  - SECRETION DISCHARGE [None]
  - PSORIASIS [None]
